FAERS Safety Report 8395425-6 (Version None)
Quarter: 2012Q2

REPORT INFORMATION
  Report Type: 
  Country: None (occurrence: None)
  Receive Date: 20120530
  Receipt Date: 20120521
  Transmission Date: 20120825
  Serious: No
  Sender: FDA-Public Use
  Company Number: US-B.I. PHARMACEUTICALS,INC./RIDGEFIELD-2012-BP-11342BP

PATIENT
  Sex: Female

DRUGS (4)
  1. TRADJENTA [Suspect]
     Indication: TYPE 2 DIABETES MELLITUS
     Dosage: 5 MG
     Route: 048
     Dates: start: 20120517
  2. CALCIUM CHANNEL BLOCKER [Concomitant]
     Indication: BLOOD PRESSURE ABNORMAL
  3. DIURECTIC [Concomitant]
     Indication: BLOOD PRESSURE ABNORMAL
  4. ALPHA BLOCKER [Concomitant]
     Indication: BLOOD PRESSURE ABNORMAL

REACTIONS (1)
  - TINNITUS [None]
